FAERS Safety Report 7785478-8 (Version None)
Quarter: 2011Q3

REPORT INFORMATION
  Report Type: 
  Country: None (occurrence: None)
  Receive Date: 20110929
  Receipt Date: 20110916
  Transmission Date: 20111222
  Serious: Yes (Other)
  Sender: FDA-Public Use
  Company Number: BR-RANBAXY-2011R5-48408

PATIENT

DRUGS (1)
  1. ACYCLOVIR [Suspect]
     Indication: GENITAL HERPES
     Dosage: 200 MG, QID
     Route: 048
     Dates: start: 20110907, end: 20110909

REACTIONS (1)
  - UTERINE HAEMORRHAGE [None]
